FAERS Safety Report 18780260 (Version 5)
Quarter: 2021Q4

REPORT INFORMATION
  Report Type: Spontaneous
  Country: FR (occurrence: FR)
  Receive Date: 20210125
  Receipt Date: 20211022
  Transmission Date: 20220303
  Serious: Yes (Death, Hospitalization, Other)
  Sender: FDA-Public Use
  Company Number: None

PATIENT
  Age: 55 Year
  Sex: Female
  Weight: 85 kg

DRUGS (19)
  1. RIFATER [Suspect]
     Active Substance: ISONIAZID\PYRAZINAMIDE\RIFAMPIN
     Indication: Lymph node tuberculosis
     Dosage: 8 DF
     Route: 048
     Dates: start: 20201206, end: 20201215
  2. ETHAMBUTOL [Suspect]
     Active Substance: ETHAMBUTOL HYDROCHLORIDE
     Indication: Lymph node tuberculosis
     Dosage: 2 TABLETS / DAY OR 1000 MG / DAY
     Route: 048
     Dates: start: 20201204, end: 20201215
  3. ARANESP [Concomitant]
     Active Substance: DARBEPOETIN ALFA
     Dosage: 40 UG, QW
  4. FOLIC ACID [Concomitant]
     Active Substance: FOLIC ACID
  5. IRBESARTAN [Concomitant]
     Active Substance: IRBESARTAN
  6. VOGALENE [Concomitant]
     Active Substance: METOPIMAZINE
  7. SERTRALINE [Concomitant]
     Active Substance: SERTRALINE HYDROCHLORIDE
  8. FRESUBIN [CAFFEINE;CARBOHYDRATES NOS;FATS NOS;FIBRE, DIETARY;MINERALS [Concomitant]
  9. MYFORTIC [Concomitant]
     Active Substance: MYCOPHENOLATE SODIUM
  10. TACROLIMUS [Concomitant]
     Active Substance: TACROLIMUS
  11. PREDNISONE [Concomitant]
     Active Substance: PREDNISONE
  12. ATORVASTATIN [Concomitant]
     Active Substance: ATORVASTATIN
  13. KARDEGIC [Concomitant]
     Active Substance: ASPIRIN DL-LYSINE
  14. NOREPINEPHRINE [Concomitant]
     Active Substance: NOREPINEPHRINE
  15. LANSOPRAZOLE [Concomitant]
     Active Substance: LANSOPRAZOLE
  16. DOLIPRANE [Concomitant]
     Active Substance: ACETAMINOPHEN
  17. VILDAGLIPTIN [Concomitant]
     Active Substance: VILDAGLIPTIN
  18. SODIUM CHLORIDE [Concomitant]
     Active Substance: SODIUM CHLORIDE
  19. PYRIDOXINE\THIAMINE [Concomitant]
     Active Substance: PYRIDOXINE\THIAMINE
     Dosage: 1 DF, QD

REACTIONS (6)
  - Cholestasis [Fatal]
  - Hepatic cytolysis [Fatal]
  - Hypotension [Unknown]
  - Somnolence [Unknown]
  - Tachycardia [Unknown]
  - Product prescribing error [Unknown]

NARRATIVE: CASE EVENT DATE: 20201204
